FAERS Safety Report 12286474 (Version 4)
Quarter: 2016Q3

REPORT INFORMATION
  Report Type: Spontaneous
  Country: TW (occurrence: TW)
  Receive Date: 20160420
  Receipt Date: 20160714
  Transmission Date: 20161109
  Serious: Yes (Hospitalization, Other)
  Sender: FDA-Public Use
  Company Number: TW-WATSON-2016-08121

PATIENT
  Age: 49 Year
  Sex: Male

DRUGS (4)
  1. TRIHEXYPHENIDYL HYDROCHLORIDE (WATSON LABORATORIES) [Suspect]
     Active Substance: TRIHEXYPHENIDYL HYDROCHLORIDE
     Indication: TARDIVE DYSKINESIA
     Dosage: 4 MG, DAILY
     Route: 065
     Dates: end: 201207
  2. TRAZODONE HYDROCHLORIDE (WATSON LABORATORIES) [Suspect]
     Active Substance: TRAZODONE HYDROCHLORIDE
     Indication: SLEEP DISORDER
     Dosage: 50 MG, QHS
     Route: 065
     Dates: end: 201207
  3. SULPIRIDE [Concomitant]
     Active Substance: SULPIRIDE
     Indication: PRODUCT USED FOR UNKNOWN INDICATION
     Dosage: 400 MG, DAILY
     Route: 065
  4. OLANZAPINE (UNKNOWN) [Suspect]
     Active Substance: OLANZAPINE
     Indication: SCHIZOPHRENIA
     Dosage: 20 MG, DAILY
     Route: 065
     Dates: end: 201207

REACTIONS (4)
  - Pneumonia aspiration [Recovered/Resolved]
  - Heat stroke [Recovered/Resolved]
  - Acute kidney injury [Recovered/Resolved]
  - Extra dose administered [Recovered/Resolved]
